FAERS Safety Report 16460978 (Version 1)
Quarter: 2019Q2

REPORT INFORMATION
  Report Type: Spontaneous
  Country: CN (occurrence: CN)
  Receive Date: 20190621
  Receipt Date: 20190621
  Transmission Date: 20190711
  Serious: No
  Sender: FDA-Public Use
  Company Number: CN-ALKEM LABORATORIES LIMITED-CN-ALKEM-2019-02569

PATIENT
  Age: 63 Year
  Sex: Female

DRUGS (2)
  1. CAPECITABINE. [Suspect]
     Active Substance: CAPECITABINE
     Indication: MUCINOUS ADENOCARCINOMA OF APPENDIX
     Dosage: 1500 MG, BID
     Route: 048
  2. BEVACIZUMAB. [Suspect]
     Active Substance: BEVACIZUMAB
     Indication: MUCINOUS ADENOCARCINOMA OF APPENDIX
     Dosage: 7.5 MG/KG DAY 1 EACH 3 WEEKS
     Route: 065

REACTIONS (6)
  - Fatigue [Unknown]
  - Dry throat [Unknown]
  - Nasal dryness [Unknown]
  - Decreased appetite [Unknown]
  - Epistaxis [Unknown]
  - Hypoaesthesia [Unknown]
